FAERS Safety Report 15939468 (Version 1)
Quarter: 2019Q1

REPORT INFORMATION
  Report Type: Spontaneous
  Country: AU (occurrence: AU)
  Receive Date: 20190208
  Receipt Date: 20190208
  Transmission Date: 20190417
  Serious: Yes (Hospitalization, Other)
  Sender: FDA-Public Use
  Company Number: AU-SAKK-2019SA023756AA

PATIENT
  Age: 83 Year
  Sex: Female

DRUGS (11)
  1. HEPARIN SODIUM. [Suspect]
     Active Substance: HEPARIN SODIUM
  2. CLOPIDOGREL BISULFATE. [Suspect]
     Active Substance: CLOPIDOGREL BISULFATE
     Route: 048
  3. ACE INHIBITORS [Concomitant]
     Active Substance: UNSPECIFIED INGREDIENT
  4. METFORMIN [Concomitant]
     Active Substance: METFORMIN HYDROCHLORIDE
     Indication: TYPE 2 DIABETES MELLITUS
  5. BETA BLOCKING AGENTS [Concomitant]
     Active Substance: UNSPECIFIED INGREDIENT
  6. PANADOL [Concomitant]
     Active Substance: ACETAMINOPHEN
     Indication: ARTHRITIS
     Dosage: UNK
     Dates: start: 2015
  7. SERETIDE [Concomitant]
     Active Substance: FLUTICASONE PROPIONATE\SALMETEROL XINAFOATE
     Dosage: UNK
     Dates: start: 2013
  8. TIOTROPIUM [Concomitant]
     Active Substance: TIOTROPIUM
     Indication: CHRONIC OBSTRUCTIVE PULMONARY DISEASE
     Dosage: UNK
     Dates: start: 2013
  9. STATIN [NYSTATIN] [Concomitant]
     Active Substance: NYSTATIN
  10. INSULIN BOVINE [Concomitant]
     Dosage: UNK UNK, UNK
     Dates: start: 2012
  11. ACETYLSALICYLIC ACID [Suspect]
     Active Substance: ASPIRIN

REACTIONS (21)
  - Pneumonia [Recovered/Resolved]
  - Upper gastrointestinal haemorrhage [Unknown]
  - Hypertension [Unknown]
  - Blood glucose increased [Recovered/Resolved]
  - Gastrooesophageal reflux disease [Unknown]
  - Varices oesophageal [Unknown]
  - Catheter site haemorrhage [Unknown]
  - Acute myocardial infarction [Recovered/Resolved with Sequelae]
  - Hypotension [Unknown]
  - Oedema peripheral [Unknown]
  - Activated partial thromboplastin time prolonged [Unknown]
  - Duodenal ulcer [Unknown]
  - Dysuria [Recovered/Resolved]
  - Pyrexia [Recovered/Resolved]
  - Cardiac failure [Recovered/Resolved with Sequelae]
  - Portal hypertension [Unknown]
  - Gastric ulcer [Unknown]
  - Tachycardia [Unknown]
  - Confusional state [Recovered/Resolved]
  - Haemoglobin decreased [Unknown]
  - Somnolence [Recovered/Resolved]

NARRATIVE: CASE EVENT DATE: 201807
